FAERS Safety Report 6790541-4 (Version None)
Quarter: 2010Q2

REPORT INFORMATION
  Report Type: 
  Country: None (occurrence: None)
  Receive Date: 20100624
  Receipt Date: 20100616
  Transmission Date: 20101027
  Serious: Yes (Hospitalization)
  Sender: FDA-Public Use
  Company Number: CA-ROCHE-710138

PATIENT
  Sex: Female

DRUGS (5)
  1. BEVACIZUMAB [Suspect]
     Indication: COLORECTAL CANCER
     Dosage: FORM: INFUSION
     Route: 042
     Dates: start: 20100422
  2. SPORANOX [Concomitant]
  3. CELEXA [Concomitant]
  4. MORPHINE SULFATE [Concomitant]
     Dosage: DRUG NAME REPORTED AS: MORPHINE SULPHATE
  5. ZOPICLONE [Concomitant]

REACTIONS (1)
  - INTESTINAL OBSTRUCTION [None]
